FAERS Safety Report 23986962 (Version 1)
Quarter: 2024Q2

REPORT INFORMATION
  Report Type: Spontaneous
  Country: HR (occurrence: HR)
  Receive Date: 20240618
  Receipt Date: 20240618
  Transmission Date: 20240716
  Serious: Yes (Life-Threatening, Hospitalization, Other)
  Sender: FDA-Public Use
  Company Number: None

PATIENT
  Age: 15 Year
  Sex: Female

DRUGS (1)
  1. AMOXICILLIN\CLAVULANATE POTASSIUM [Suspect]
     Active Substance: AMOXICILLIN\CLAVULANATE POTASSIUM
     Indication: Impetigo
     Dosage: 1 DF = 875 MG AMOXICILLIN TRIHYDRATE + 125 MG POTASSIUM CLAVULANATE
     Route: 048
     Dates: start: 20240510, end: 20240517

REACTIONS (7)
  - Joint swelling [Recovering/Resolving]
  - Urticaria [Recovering/Resolving]
  - Type III immune complex mediated reaction [Recovering/Resolving]
  - Drug hypersensitivity [Recovering/Resolving]
  - Polyarthritis [Recovering/Resolving]
  - Arthralgia [Recovering/Resolving]
  - Pruritus [Recovering/Resolving]

NARRATIVE: CASE EVENT DATE: 20240517
